FAERS Safety Report 9080198 (Version 1)
Quarter: 2013Q1

REPORT INFORMATION
  Report Type: Spontaneous
  Country: ZA (occurrence: ZA)
  Receive Date: 20130218
  Receipt Date: 20130218
  Transmission Date: 20140127
  Serious: Yes (Other)
  Sender: FDA-Public Use
  Company Number: PHHY2013ZA013944

PATIENT
  Sex: 0

DRUGS (5)
  1. VALPROIC ACID [Suspect]
  2. RITONAVIR [Suspect]
  3. LOPINAVIR [Suspect]
  4. STAVUDINE [Concomitant]
  5. LAMIVUDINE [Concomitant]

REACTIONS (2)
  - Drug level decreased [Unknown]
  - Convulsion [Unknown]
